FAERS Safety Report 9266808 (Version 1)
Quarter: 2013Q2

REPORT INFORMATION
  Report Type: Spontaneous
  Country: KR (occurrence: KR)
  Receive Date: 20130502
  Receipt Date: 20130502
  Transmission Date: 20140414
  Serious: Yes (Death, Other)
  Sender: FDA-Public Use
  Company Number: KR-CELGENEUS-286-20785-13043898

PATIENT
  Age: 77 Year
  Sex: Male

DRUGS (3)
  1. THALIDOMIDE [Suspect]
     Indication: PLASMA CELL MYELOMA
     Route: 048
  2. BORTEZOMIB [Concomitant]
     Indication: PLASMA CELL MYELOMA
     Route: 065
  3. CORTICOSTEROID [Concomitant]
     Indication: PRODUCT USED FOR UNKNOWN INDICATION
     Route: 065

REACTIONS (3)
  - Death [Fatal]
  - Tuberculosis [Unknown]
  - Plasma cell myeloma [Unknown]
